FAERS Safety Report 23883376 (Version 1)
Quarter: 2024Q2

REPORT INFORMATION
  Report Type: Other
  Country: CA (occurrence: CA)
  Receive Date: 20240522
  Receipt Date: 20240522
  Transmission Date: 20240716
  Serious: Yes (Death)
  Sender: FDA-Public Use
  Company Number: CA-ASTELLAS-2024US014189

PATIENT

DRUGS (3)
  1. MYRBETRIQ [Suspect]
     Active Substance: MIRABEGRON
     Indication: Product used for unknown indication
     Route: 064
  2. MYRBETRIQ [Suspect]
     Active Substance: MIRABEGRON
     Route: 064
  3. MYRBETRIQ [Suspect]
     Active Substance: MIRABEGRON
     Dosage: 1 DF, EVERY OTHER DAY (1 EVERY 2 DAYS, EXTENDED RELEASE)
     Route: 064

REACTIONS (2)
  - Live birth [Fatal]
  - Foetal exposure during pregnancy [Unknown]
